FAERS Safety Report 10211285 (Version 1)
Quarter: 2014Q2

REPORT INFORMATION
  Report Type: Spontaneous
  Country: DE (occurrence: None)
  Receive Date: 20140528
  Receipt Date: 20140528
  Transmission Date: 20141212
  Serious: Yes (Other)
  Sender: FDA-Public Use
  Company Number: AUR-APL-2014-06092

PATIENT
  Age: 1 Day
  Sex: Male
  Weight: 1.78 kg

DRUGS (3)
  1. SERTRALINE [Suspect]
     Indication: BIPOLAR DISORDER
     Route: 064
     Dates: start: 20130304, end: 20130810
  2. SEROQUEL PROLONG [Suspect]
     Indication: BIPOLAR DISORDER
     Route: 064
     Dates: start: 20121213, end: 20130810
  3. FEMIBION (FEMIBION) [Concomitant]

REACTIONS (6)
  - Maternal drugs affecting foetus [None]
  - Stillbirth [None]
  - Small for dates baby [None]
  - Vena cava thrombosis [None]
  - Renal vein thrombosis [None]
  - Placental insufficiency [None]
